FAERS Safety Report 16949285 (Version 2)
Quarter: 2019Q4

REPORT INFORMATION
  Report Type: Spontaneous
  Country: RO (occurrence: RO)
  Receive Date: 20191023
  Receipt Date: 20191025
  Transmission Date: 20200122
  Serious: Yes (Death, Hospitalization)
  Sender: FDA-Public Use
  Company Number: RO-ASTRAZENECA-2019SF48706

PATIENT
  Age: 68 Year
  Sex: Male

DRUGS (13)
  1. ASA [Concomitant]
     Active Substance: ASPIRIN
     Indication: ANGINA UNSTABLE
  2. SYMBICORT [Concomitant]
     Active Substance: BUDESONIDE\FORMOTEROL FUMARATE DIHYDRATE
  3. BRILIQUE [Suspect]
     Active Substance: TICAGRELOR
     Indication: STENT PLACEMENT
     Route: 048
  4. ATACAND [Concomitant]
     Active Substance: CANDESARTAN CILEXETIL
  5. NOVOMIX [Concomitant]
     Active Substance: INSULIN ASPART
  6. CORYOL [Concomitant]
     Active Substance: CARVEDILOL
  7. FUROSEMID [Concomitant]
     Active Substance: FUROSEMIDE
  8. BRILIQUE [Suspect]
     Active Substance: TICAGRELOR
     Indication: ANGINA UNSTABLE
     Route: 048
  9. ASA [Concomitant]
     Active Substance: ASPIRIN
     Indication: STENT PLACEMENT
  10. SPIRIVA [Concomitant]
     Active Substance: TIOTROPIUM BROMIDE MONOHYDRATE
  11. CONCOR [Concomitant]
     Active Substance: BISOPROLOL FUMARATE
  12. VEROSPIRON [Concomitant]
     Active Substance: SPIRONOLACTONE
  13. TENAXUM [Concomitant]
     Active Substance: RILMENIDINE

REACTIONS (2)
  - Respiratory failure [Unknown]
  - Cerebrovascular accident [Fatal]

NARRATIVE: CASE EVENT DATE: 201910
